FAERS Safety Report 5045934-2 (Version None)
Quarter: 2006Q3

REPORT INFORMATION
  Report Type: 
  Country: None (occurrence: None)
  Receive Date: 20060710
  Receipt Date: 20060627
  Transmission Date: 20061208
  Serious: Yes (Hospitalization, Disabling, Other)
  Sender: FDA-Public Use
  Company Number: CA-JNJFOC-20060100163

PATIENT
  Sex: Male
  Weight: 127.01 kg

DRUGS (43)
  1. RISPERDAL [Suspect]
     Route: 048
  2. RISPERDAL [Suspect]
     Route: 048
  3. RISPERDAL [Suspect]
     Route: 048
  4. RISPERDAL [Suspect]
     Route: 048
  5. RISPERDAL [Suspect]
     Route: 048
  6. RISPERDAL [Suspect]
     Route: 048
  7. RISPERDAL [Suspect]
     Route: 048
  8. RISPERDAL [Suspect]
     Route: 048
  9. RISPERDAL [Suspect]
     Route: 048
  10. RISPERDAL [Suspect]
     Route: 048
  11. RISPERDAL [Suspect]
     Route: 048
  12. RISPERDAL [Suspect]
     Route: 048
  13. RISPERDAL [Suspect]
     Route: 048
  14. RISPERDAL [Suspect]
     Indication: BIPOLAR DISORDER
     Route: 048
  15. RISPERDAL [Suspect]
     Indication: PSYCHOTIC DISORDER
     Route: 048
  16. LITHIUM CARBONATE [Concomitant]
     Indication: BIPOLAR DISORDER
  17. LITHIUM CARBONATE [Concomitant]
     Indication: MOOD ALTERED
     Dosage: DOSE INCREASED FROM 900 MG TO 1800 MG DAILY
  18. PAROXETINE HCL [Concomitant]
     Route: 048
  19. PAROXETINE HCL [Concomitant]
     Route: 048
  20. PAROXETINE HCL [Concomitant]
     Route: 048
  21. PAROXETINE HCL [Concomitant]
     Dosage: TOOK 10 OR MORE TABLETS
     Route: 048
  22. PAROXETINE HCL [Concomitant]
     Route: 048
  23. PAROXETINE HCL [Concomitant]
     Route: 048
  24. PAROXETINE HCL [Concomitant]
     Indication: DEPRESSION
     Route: 048
  25. FLURAZEPAM [Concomitant]
     Dosage: 15-30 MG
  26. FLURAZEPAM [Concomitant]
     Indication: INSOMNIA
  27. CITALOPRAM [Concomitant]
     Indication: DEPRESSION
     Route: 048
  28. LORAZEPAM [Concomitant]
     Indication: ANXIETY
  29. IMOVANE [Concomitant]
     Route: 048
  30. IMOVANE [Concomitant]
     Dosage: TOOK 10 OR MORE
     Route: 048
  31. IMOVANE [Concomitant]
     Dosage: TOOK 30 TABLETS
     Route: 048
  32. IMOVANE [Concomitant]
     Dosage: 7.5 MG AT BEDTIME, AS NEEDED
     Route: 048
  33. IMOVANE [Concomitant]
     Indication: INSOMNIA
     Route: 048
  34. SEROQUEL [Concomitant]
  35. SEROQUEL [Concomitant]
     Dosage: DOSAGE FROM 200 MG DAILY GRADUALLY INCREASED TO 1200 MG DAILY.
  36. FLUPHENAZINE [Concomitant]
     Route: 048
  37. FLUPHENAZINE [Concomitant]
     Route: 048
  38. FLUPHENAZINE [Concomitant]
     Indication: SCHIZOAFFECTIVE DISORDER
     Route: 048
  39. TEGRETOL [Concomitant]
     Route: 048
  40. WELLBUTRIN [Concomitant]
  41. ZOLOFT [Concomitant]
     Indication: DEPRESSION
     Dosage: DOSE INCREASED FROM 50 MG TO 100 MG DAILY
  42. COGENTIN [Concomitant]
  43. COGENTIN [Concomitant]
     Indication: MUSCULOSKELETAL STIFFNESS

REACTIONS (22)
  - ABDOMINAL DISTENSION [None]
  - ALCOHOLISM [None]
  - ANXIETY [None]
  - BIPOLAR DISORDER [None]
  - BONE PAIN [None]
  - CHOLELITHIASIS [None]
  - DEPRESSION [None]
  - DIABETES MELLITUS NON-INSULIN-DEPENDENT [None]
  - DIARRHOEA [None]
  - DIZZINESS [None]
  - DYSLIPIDAEMIA [None]
  - EXTRAPYRAMIDAL DISORDER [None]
  - HEADACHE [None]
  - HEPATIC ENZYME INCREASED [None]
  - HEPATOSPLENOMEGALY [None]
  - INSOMNIA [None]
  - SLUGGISHNESS [None]
  - STOMACH DISCOMFORT [None]
  - SUICIDE ATTEMPT [None]
  - TREMOR [None]
  - UMBILICAL HERNIA [None]
  - WEIGHT INCREASED [None]
